FAERS Safety Report 20840230 (Version 1)
Quarter: 2022Q2

REPORT INFORMATION
  Report Type: Spontaneous
  Country: US (occurrence: None)
  Receive Date: 20220516
  Receipt Date: 20220516
  Transmission Date: 20220721
  Serious: No
  Sender: FDA-Public Use
  Company Number: None

PATIENT
  Sex: Male

DRUGS (1)
  1. SKYRIZI [Suspect]
     Active Substance: RISANKIZUMAB-RZAA
     Indication: Psoriasis
     Dosage: 150MG EVERY 12 WEEKS UNDER THE SKIN?
     Route: 058
     Dates: start: 20220420

REACTIONS (4)
  - Injection site erythema [None]
  - Injection site pruritus [None]
  - Injection site pain [None]
  - Drug ineffective [None]
